FAERS Safety Report 6734416-5 (Version None)
Quarter: 2010Q2

REPORT INFORMATION
  Report Type: 
  Country: None (occurrence: None)
  Receive Date: 20100520
  Receipt Date: 20100518
  Transmission Date: 20101027
  Serious: Yes (Hospitalization)
  Sender: FDA-Public Use
  Company Number: US-EISAI INC.-E2080-00297-SPO-US

PATIENT
  Age: 14 Year
  Sex: Female

DRUGS (5)
  1. BANZEL [Suspect]
     Route: 048
  2. BANZEL [Suspect]
     Route: 048
  3. BANZEL [Suspect]
     Route: 048
  4. TOPIRAMATE [Concomitant]
  5. PREGABALIN [Concomitant]

REACTIONS (2)
  - CONSTIPATION [None]
  - WEIGHT DECREASED [None]
